FAERS Safety Report 4996436-0 (Version None)
Quarter: 2006Q2

REPORT INFORMATION
  Report Type: 
  Country: None (occurrence: None)
  Receive Date: 20060505
  Receipt Date: 20060426
  Transmission Date: 20061013
  Serious: Yes (Other)
  Sender: FDA-Public Use
  Company Number: 2006057161

PATIENT
  Age: 75 Year
  Sex: Female
  Weight: 54 kg

DRUGS (6)
  1. SULFASALAZINE [Suspect]
     Indication: RHEUMATOID ARTHRITIS
     Dosage: 1000 MG (500 MG, 2 IN 1 D), ORAL
     Route: 048
     Dates: start: 20060401, end: 20060418
  2. OMEPRAZOLE [Concomitant]
  3. LEVOTHYROXINE SODIUM [Concomitant]
  4. OXYBUTYNIN [Concomitant]
  5. SALBUTAMOL [Concomitant]
  6. BECLOMETHASONE DIPROPIONATE [Concomitant]

REACTIONS (5)
  - ALOPECIA [None]
  - ANAEMIA [None]
  - ANOREXIA [None]
  - DERMATITIS [None]
  - INFLUENZA [None]
